FAERS Safety Report 9901750 (Version 2)
Quarter: 2014Q1

REPORT INFORMATION
  Report Type: Spontaneous
  Country: DE (occurrence: DE)
  Receive Date: 20140217
  Receipt Date: 20140217
  Transmission Date: 20141002
  Serious: Yes (Other)
  Sender: FDA-Public Use
  Company Number: DE-ACTELION-A-CH2014-94606

PATIENT
  Age: 64 Year
  Sex: Female

DRUGS (5)
  1. TRACLEER [Suspect]
     Indication: SYSTEMIC SCLEROSIS
     Dosage: 62.5 MG, BID
     Route: 048
     Dates: start: 20140115, end: 20140202
  2. L-THYROX [Concomitant]
  3. FAMOTIDIN [Concomitant]
  4. TALVOSILEN [Concomitant]
  5. LOPERAMID [Concomitant]

REACTIONS (3)
  - Pleural effusion [Unknown]
  - Diarrhoea [Unknown]
  - Pulmonary oedema [Unknown]
